FAERS Safety Report 23886666 (Version 2)
Quarter: 2024Q2

REPORT INFORMATION
  Report Type: Spontaneous
  Country: US (occurrence: US)
  Receive Date: 20240522
  Receipt Date: 20240529
  Transmission Date: 20240715
  Serious: Yes (Life-Threatening, Hospitalization)
  Sender: FDA-Public Use
  Company Number: None

PATIENT

DRUGS (1)
  1. LOPERAMIDE HYDROCHLORIDE [Suspect]
     Active Substance: LOPERAMIDE HYDROCHLORIDE
     Indication: Product used for unknown indication
     Dosage: 96 MILLIGRAM
     Route: 048

REACTIONS (13)
  - Multiple organ dysfunction syndrome [Recovered/Resolved]
  - Lactic acidosis [Unknown]
  - Distributive shock [Recovered/Resolved]
  - Intentional product misuse [Unknown]
  - Hypotension [Unknown]
  - Respiratory alkalosis [Recovered/Resolved]
  - Cardiac failure high output [Recovered/Resolved]
  - Acute kidney injury [Recovered/Resolved]
  - Metabolic acidosis [Unknown]
  - Incorrect dose administered [Recovered/Resolved]
  - Pancreatitis [Unknown]
  - Overdose [Unknown]
  - Toxicity to various agents [Unknown]

NARRATIVE: CASE EVENT DATE: 20230101
